FAERS Safety Report 17949995 (Version 4)
Quarter: 2020Q4

REPORT INFORMATION
  Report Type: Spontaneous
  Country: US (occurrence: US)
  Receive Date: 20200626
  Receipt Date: 20201116
  Transmission Date: 20210113
  Serious: Yes (Other)
  Sender: FDA-Public Use
  Company Number: US-GILEAD-2020-0475821

PATIENT
  Sex: Male

DRUGS (2)
  1. VIREAD [Suspect]
     Active Substance: TENOFOVIR DISOPROXIL FUMARATE
     Indication: HIV INFECTION
     Dosage: UNK
     Route: 048
     Dates: start: 200401, end: 200801
  2. VIREAD [Suspect]
     Active Substance: TENOFOVIR DISOPROXIL FUMARATE
     Dosage: UNK
     Route: 048

REACTIONS (5)
  - Osteonecrosis [Unknown]
  - Bone loss [Unknown]
  - Bone density decreased [Unknown]
  - Chronic kidney disease [Unknown]
  - Tooth loss [Not Recovered/Not Resolved]

NARRATIVE: CASE EVENT DATE: 2004
